FAERS Safety Report 10983797 (Version 1)
Quarter: 2015Q2

REPORT INFORMATION
  Report Type: Spontaneous
  Country: CN (occurrence: None)
  Receive Date: 20150401
  Receipt Date: 20150401
  Transmission Date: 20150821
  Serious: Yes (Hospitalization)
  Sender: FDA-Public Use
  Company Number: NSR_02017_2015

PATIENT
  Age: 73 Year
  Sex: Male

DRUGS (4)
  1. VILDAGLIPTIN [Concomitant]
     Active Substance: VILDAGLIPTIN
  2. BENZBROMARONE [Concomitant]
     Active Substance: BENZBROMARONE
  3. CALCITRIOL. [Concomitant]
     Active Substance: CALCITRIOL
  4. ALLOPURINOL (ALLOPURINOL ) [Suspect]
     Active Substance: ALLOPURINOL
     Indication: CHRONIC KIDNEY DISEASE
     Dosage: (DF)

REACTIONS (4)
  - Pyrexia [None]
  - Erythema [None]
  - Rash maculo-papular [None]
  - Oedema peripheral [None]
